FAERS Safety Report 13814569 (Version 1)
Quarter: 2017Q3

REPORT INFORMATION
  Report Type: Spontaneous
  Country: US (occurrence: US)
  Receive Date: 20170731
  Receipt Date: 20170731
  Transmission Date: 20171127
  Serious: Yes (Hospitalization, Disabling, Other)
  Sender: FDA-Public Use
  Company Number: None

PATIENT
  Age: 16 Year
  Sex: Female
  Weight: 63.56 kg

DRUGS (1)
  1. MINOCYCLINE [Suspect]
     Active Substance: MINOCYCLINE\MINOCYCLINE HYDROCHLORIDE
     Indication: ACNE
     Dosage: 1 PILL QD PO?
     Route: 048
     Dates: start: 20130626, end: 20141211

REACTIONS (10)
  - Smooth muscle antibody positive [None]
  - Blood pressure systolic increased [None]
  - Feeling abnormal [None]
  - Malaise [None]
  - Acute hepatic failure [None]
  - Blood iron decreased [None]
  - Arthralgia [None]
  - Autoimmune thyroiditis [None]
  - Amenorrhoea [None]
  - Anaemia [None]

NARRATIVE: CASE EVENT DATE: 20130501
